FAERS Safety Report 8972319 (Version 1)
Quarter: 2012Q4

REPORT INFORMATION
  Report Type: 
  Country: US (occurrence: US)
  Receive Date: 20121218
  Receipt Date: 20121218
  Transmission Date: 20130627
  Serious: Yes (Death)
  Sender: FDA-Public Use
  Company Number: PHHY2012US116469

PATIENT
  Age: 93 Year
  Sex: Female

DRUGS (1)
  1. ASCRIPTIN BUFFERED MAX STRENGTH CAPLETS [Suspect]
     Dosage: 1 DF, QD
     Route: 048

REACTIONS (2)
  - Death [Fatal]
  - Incorrect drug administration duration [Unknown]
